FAERS Safety Report 8327899-0 (Version None)
Quarter: 2012Q2

REPORT INFORMATION
  Report Type: 
  Country: None (occurrence: None)
  Receive Date: 20120502
  Receipt Date: 20120423
  Transmission Date: 20120825
  Serious: Yes (Hospitalization)
  Sender: FDA-Public Use
  Company Number: US-SANOFI-AVENTIS-2012SA019227

PATIENT
  Age: 74 Year
  Sex: Male
  Weight: 108.86 kg

DRUGS (7)
  1. LANTUS [Suspect]
     Indication: TYPE 2 DIABETES MELLITUS
     Dosage: DOSE:34 UNIT(S)
     Route: 058
  2. METHADONE HCL [Concomitant]
     Indication: PAIN MANAGEMENT
     Dosage: NIGHTLY
     Dates: start: 20060901
  3. CALCITRIOL [Concomitant]
  4. FUROSEMIDE [Concomitant]
  5. LYRICA [Concomitant]
     Indication: PAIN MANAGEMENT
     Dosage: NIGHTLY
     Dates: start: 20060901
  6. SOLOSTAR [Suspect]
     Indication: TYPE 2 DIABETES MELLITUS
  7. QUINAPRIL [Concomitant]
     Indication: HYPERTENSION

REACTIONS (9)
  - CONCUSSION [None]
  - CLAVICLE FRACTURE [None]
  - SPINAL COMPRESSION FRACTURE [None]
  - LYMPHOEDEMA [None]
  - AMNESIA [None]
  - UPPER LIMB FRACTURE [None]
  - NERVE INJURY [None]
  - ROAD TRAFFIC ACCIDENT [None]
  - CRANIOCEREBRAL INJURY [None]
